FAERS Safety Report 9686708 (Version 3)
Quarter: 2014Q1

REPORT INFORMATION
  Report Type: Report from Study
  Country: US (occurrence: US)
  Receive Date: 20131113
  Receipt Date: 20140311
  Transmission Date: 20141002
  Serious: Yes (Hospitalization, Other)
  Sender: FDA-Public Use
  Company Number: US-ABBVIE-13P-163-1167466-00

PATIENT
  Age: 59 Year
  Sex: Female
  Weight: 81.27 kg

DRUGS (2)
  1. PROMETRIUM [Suspect]
     Indication: HORMONE REPLACEMENT THERAPY
     Dates: start: 2003
  2. CLIMARA [Concomitant]
     Indication: DRUG THERAPY
     Dosage: UNKNOWN

REACTIONS (7)
  - Cardiac failure congestive [Unknown]
  - Cardiomyopathy [Unknown]
  - Ventricular tachycardia [Unknown]
  - Left atrial dilatation [Unknown]
  - Ill-defined disorder [Unknown]
  - Fatigue [Unknown]
  - Dyspnoea [Unknown]
